FAERS Safety Report 21176527 (Version 1)
Quarter: 2022Q3

REPORT INFORMATION
  Report Type: Spontaneous
  Country: AT (occurrence: None)
  Receive Date: 20220804
  Receipt Date: 20220804
  Transmission Date: 20221026
  Serious: Yes (Hospitalization)
  Sender: FDA-Public Use
  Company Number: None

PATIENT
  Age: 38 Year
  Sex: Female
  Weight: 64 kg

DRUGS (1)
  1. .DELTA.8-TETRAHYDROCANNABINOL\HERBALS [Suspect]
     Active Substance: .DELTA.8-TETRAHYDROCANNABINOL\HERBALS
     Dosage: OTHER QUANTITY : 3 1;?
     Route: 048
     Dates: start: 20220803, end: 20220804

REACTIONS (6)
  - Dizziness [None]
  - Headache [None]
  - Fatigue [None]
  - Dry mouth [None]
  - Depressed level of consciousness [None]
  - Dehydration [None]

NARRATIVE: CASE EVENT DATE: 20220803
